FAERS Safety Report 4643760-7 (Version None)
Quarter: 2005Q2

REPORT INFORMATION
  Report Type: 
  Country: None (occurrence: None)
  Receive Date: 20050425
  Receipt Date: 20050413
  Transmission Date: 20051028
  Serious: Yes (Hospitalization, Other)
  Sender: FDA-Public Use
  Company Number: GB-JNJFOC-20050405490

PATIENT
  Sex: Female
  Weight: 58 kg

DRUGS (6)
  1. REMICADE [Suspect]
     Indication: RHEUMATOID ARTHRITIS
     Route: 042
  2. ARTHROTEC [Concomitant]
     Route: 065
  3. ARTHROTEC [Concomitant]
     Route: 065
  4. COZAAR [Concomitant]
     Route: 065
  5. CALCICHEW [Concomitant]
     Route: 065
  6. FOSAMAX [Concomitant]
     Route: 065

REACTIONS (1)
  - BASAL CELL CARCINOMA [None]
